FAERS Safety Report 17373183 (Version 1)
Quarter: 2020Q1

REPORT INFORMATION
  Report Type: Spontaneous
  Country: US (occurrence: US)
  Receive Date: 20200204
  Receipt Date: 20200204
  Transmission Date: 20200409
  Serious: No
  Sender: FDA-Public Use
  Company Number: None

PATIENT
  Age: 1 Year
  Sex: Male

DRUGS (1)
  1. SYNAGIS [Suspect]
     Active Substance: PALIVIZUMAB

REACTIONS (5)
  - Pyrexia [None]
  - Injection site reaction [None]
  - Injection site swelling [None]
  - Injection site erythema [None]
  - Diarrhoea [None]

NARRATIVE: CASE EVENT DATE: 20200113
